FAERS Safety Report 13982788 (Version 1)
Quarter: 2017Q3

REPORT INFORMATION
  Report Type: Spontaneous
  Country: GB (occurrence: GB)
  Receive Date: 20170918
  Receipt Date: 20170918
  Transmission Date: 20171128
  Serious: Yes (Other)
  Sender: FDA-Public Use
  Company Number: GB-TEVA-805875ACC

PATIENT
  Age: 40 Year
  Sex: Female
  Weight: 85.72 kg

DRUGS (1)
  1. IBUPROFEN. [Suspect]
     Active Substance: IBUPROFEN
     Indication: PAIN
     Dosage: OCCASIONAL USE
     Route: 048
     Dates: end: 20170824

REACTIONS (5)
  - Back pain [Recovering/Resolving]
  - Pruritus [Recovering/Resolving]
  - Influenza like illness [Recovering/Resolving]
  - Paraesthesia [Recovering/Resolving]
  - Skin burning sensation [Recovering/Resolving]

NARRATIVE: CASE EVENT DATE: 20170824
